FAERS Safety Report 11413689 (Version 1)
Quarter: 2015Q3

REPORT INFORMATION
  Report Type: Spontaneous
  Country: FR (occurrence: FR)
  Receive Date: 20150824
  Receipt Date: 20150824
  Transmission Date: 20151125
  Serious: Yes (Other)
  Sender: FDA-Public Use
  Company Number: FR-PFIZER INC-2015275192

PATIENT
  Age: 41 Year
  Sex: Female
  Weight: 63 kg

DRUGS (6)
  1. EFFEXOR LP [Suspect]
     Active Substance: VENLAFAXINE HYDROCHLORIDE
     Dosage: PROGRESSIVE DOSAGE INCREASE
     Route: 048
     Dates: start: 201501
  2. IMOVANE [Suspect]
     Active Substance: ZOPICLONE
     Dosage: UNK
     Route: 048
     Dates: end: 20150529
  3. LYSANXIA [Concomitant]
     Active Substance: PRAZEPAM
     Dosage: 10 MG, UNK
  4. EFFEXOR LP [Suspect]
     Active Substance: VENLAFAXINE HYDROCHLORIDE
     Dosage: 75 MG, 2X/DAY
     Route: 048
     Dates: start: 201504, end: 20150529
  5. EFFEXOR LP [Suspect]
     Active Substance: VENLAFAXINE HYDROCHLORIDE
     Indication: DEPRESSION
     Dosage: 75 MG, DAILY
     Route: 048
     Dates: start: 20141104
  6. EFFEXOR LP [Suspect]
     Active Substance: VENLAFAXINE HYDROCHLORIDE
     Dosage: 75 MG, 3X/DAY
     Route: 048

REACTIONS (7)
  - Oedema peripheral [Recovered/Resolved]
  - Hepatocellular injury [Recovered/Resolved]
  - Hepatitis cholestatic [Recovering/Resolving]
  - Non-alcoholic steatohepatitis [Recovering/Resolving]
  - Vomiting [Recovered/Resolved]
  - Pancreatic enzymes increased [Recovering/Resolving]
  - Hyperlipasaemia [Recovering/Resolving]

NARRATIVE: CASE EVENT DATE: 201504
